FAERS Safety Report 6038304-1 (Version None)
Quarter: 2009Q1

REPORT INFORMATION
  Report Type: 
  Country: None (occurrence: None)
  Receive Date: 20090114
  Receipt Date: 20090114
  Transmission Date: 20090719
  Serious: No
  Sender: FDA-Public Use
  Company Number: None

PATIENT
  Age: 58 Year
  Sex: Male
  Weight: 90.7194 kg

DRUGS (1)
  1. CHANTIX [Suspect]
     Indication: SMOKING CESSATION THERAPY
     Dosage: .5MGX4DAYS-1MGX30DAYS DAILY PO
     Route: 048
     Dates: start: 20081105, end: 20081201

REACTIONS (9)
  - ABNORMAL DREAMS [None]
  - ANXIETY [None]
  - CHEST PAIN [None]
  - DRUG DEPENDENCE [None]
  - DYSGEUSIA [None]
  - DYSPNOEA [None]
  - HEART RATE IRREGULAR [None]
  - INSOMNIA [None]
  - PRODUCT QUALITY ISSUE [None]
